FAERS Safety Report 24737669 (Version 1)
Quarter: 2024Q4

REPORT INFORMATION
  Report Type: Spontaneous
  Country: US (occurrence: None)
  Receive Date: 20241213
  Receipt Date: 20241213
  Transmission Date: 20250115
  Serious: Yes (Hospitalization)
  Sender: Public
  Company Number: None

PATIENT
  Age: 64 Year
  Sex: Female
  Weight: 96.75 kg

DRUGS (1)
  1. CAPECITABINE [Suspect]
     Active Substance: CAPECITABINE
     Indication: Head and neck cancer
     Dosage: 2000 MG TWICE A DAY ORAL
     Route: 048

REACTIONS (3)
  - Diarrhoea [None]
  - Nausea [None]
  - Dehydration [None]
